FAERS Safety Report 5351864-9 (Version None)
Quarter: 2007Q2

REPORT INFORMATION
  Report Type: 
  Country: None (occurrence: None)
  Receive Date: 20070521
  Receipt Date: 20070307
  Transmission Date: 20071010
  Serious: No
  Sender: FDA-Public Use
  Company Number: WAES 0703USA01164

PATIENT
  Age: 49 Year
  Sex: Male
  Weight: 127.9144 kg

DRUGS (7)
  1. JANUVIA [Suspect]
     Indication: DIABETES MELLITUS
     Dosage: 100 MG/DAILY/PO
     Route: 048
     Dates: start: 20070220, end: 20070301
  2. ACTOS [Concomitant]
  3. AMARYL [Concomitant]
  4. CELEBREX [Concomitant]
  5. DIOVAN [Concomitant]
  6. LORTAB [Concomitant]
  7. SINGULAIR [Concomitant]

REACTIONS (2)
  - SINUSITIS [None]
  - UPPER RESPIRATORY TRACT INFECTION [None]
